FAERS Safety Report 6604959-3 (Version None)
Quarter: 2010Q1

REPORT INFORMATION
  Report Type: 
  Country: None (occurrence: None)
  Receive Date: 20100219
  Receipt Date: 20100204
  Transmission Date: 20100710
  Serious: Yes (Death)
  Sender: FDA-Public Use
  Company Number: 2009003723

PATIENT
  Age: 67 Year
  Sex: Male
  Weight: 53 kg

DRUGS (10)
  1. ERLOTINIB (ERLOTINIB) (TABLET) (ERLOTINIB) [Suspect]
     Indication: LUNG ADENOCARCINOMA
     Dosage: 150I MG, QD, ORAL
     Route: 048
     Dates: start: 20080612, end: 20080702
  2. POLAPREZINC (POLAPREZINC) [Concomitant]
  3. BIOFERMIN R (STREPTOCOCCUS FAECALIS) [Concomitant]
  4. MUCOSOLVAN (AMBROXOL HYDROCHLORIDE) [Concomitant]
  5. CODEINE PHOSPHATE (CODEINE PHOSPHATE) [Concomitant]
  6. LENDORM [Concomitant]
  7. ALVESCO [Concomitant]
  8. FUNGIZONE [Concomitant]
  9. AMINO ACIDS NOS (AMINO ACIDS NOS) [Concomitant]
  10. INTRALIPOS (SOYA OIL) [Concomitant]

REACTIONS (10)
  - BLOOD UREA INCREASED [None]
  - DIARRHOEA [None]
  - ECZEMA [None]
  - LYMPHANGIOSIS CARCINOMATOSA [None]
  - MALIGNANT NEOPLASM PROGRESSION [None]
  - MALIGNANT PLEURAL EFFUSION [None]
  - NON-SMALL CELL LUNG CANCER METASTATIC [None]
  - OESOPHAGEAL STENOSIS [None]
  - PNEUMONIA ASPIRATION [None]
  - WHITE BLOOD CELL COUNT INCREASED [None]
